FAERS Safety Report 17722058 (Version 1)
Quarter: 2020Q2

REPORT INFORMATION
  Report Type: Other
  Country: NL (occurrence: IT)
  Receive Date: 20200429
  Receipt Date: 20200429
  Transmission Date: 20200714
  Serious: Yes (Hospitalization, Other)
  Sender: FDA-Public Use
  Company Number: IT-ASTELLAS-2020US014882

PATIENT
  Age: 16 Year
  Sex: Male

DRUGS (6)
  1. CASPOFUNGIN [Concomitant]
     Active Substance: CASPOFUNGIN
     Indication: PRODUCT USED FOR UNKNOWN INDICATION
     Dosage: UNK UNK, UNKNOWN FREQ.
     Route: 065
  2. ISAVUCONAZOLE [Suspect]
     Active Substance: ISAVUCONAZOLE
     Route: 042
  3. MYCOPHENOLATE MOFETIL. [Suspect]
     Active Substance: MYCOPHENOLATE MOFETIL
     Indication: IMMUNOSUPPRESSANT DRUG THERAPY
     Dosage: UNK UNK, UNKNOWN FREQ.
     Route: 065
  4. AMBISOME [Suspect]
     Active Substance: AMPHOTERICIN B
     Indication: BRONCHOPULMONARY ASPERGILLOSIS
     Dosage: UNK, UNKNOWN FREQ.
     Route: 065
  5. ACICLOVIR [Suspect]
     Active Substance: ACYCLOVIR
     Indication: ANTIVIRAL PROPHYLAXIS
     Dosage: UNK UNK, UNKNOWN FREQ.
     Route: 065
  6. ISAVUCONAZOLE [Suspect]
     Active Substance: ISAVUCONAZOLE
     Indication: BRONCHOPULMONARY ASPERGILLOSIS
     Route: 042

REACTIONS (4)
  - Hypersensitivity [Unknown]
  - Bronchopulmonary aspergillosis [Recovering/Resolving]
  - Coagulopathy [Recovered/Resolved]
  - Acute hepatic failure [Recovered/Resolved]
